FAERS Safety Report 8169564-9 (Version None)
Quarter: 2012Q1

REPORT INFORMATION
  Report Type: 
  Country: None (occurrence: None)
  Receive Date: 20120228
  Receipt Date: 20120224
  Transmission Date: 20120608
  Serious: Yes (Other)
  Sender: FDA-Public Use
  Company Number: KW-JNJFOC-20120206771

PATIENT
  Age: 82 Year
  Sex: Male

DRUGS (5)
  1. ZYTIGA [Suspect]
     Indication: PROSTATE CANCER
     Route: 048
  2. NORVASC [Concomitant]
     Indication: HYPERTENSION
     Route: 065
  3. ISORDIL [Concomitant]
     Route: 065
  4. ANTIDEPRESSANT [Concomitant]
     Indication: DEPRESSION
     Route: 065
  5. ZOCOR [Suspect]
     Indication: HYPERLIPIDAEMIA
     Route: 065

REACTIONS (1)
  - BLOOD CREATINE PHOSPHOKINASE INCREASED [None]
